FAERS Safety Report 21714795 (Version 1)
Quarter: 2022Q4

REPORT INFORMATION
  Report Type: Spontaneous
  Country: CN (occurrence: CN)
  Receive Date: 20221212
  Receipt Date: 20221212
  Transmission Date: 20230113
  Serious: Yes (Hospitalization, Other)
  Sender: FDA-Public Use
  Company Number: None

PATIENT
  Age: 2 Year
  Sex: Female
  Weight: 14.4 kg

DRUGS (10)
  1. CYCLOPHOSPHAMIDE [Suspect]
     Active Substance: CYCLOPHOSPHAMIDE
     Indication: Chemotherapy
     Dosage: 0.6 G QD DILUTED WITH 0.9% SODIUM CHLORIDE INJECTION 100ML
     Route: 041
     Dates: start: 20221118, end: 20221118
  2. SODIUM CHLORIDE [Suspect]
     Active Substance: SODIUM CHLORIDE
     Indication: Medication dilution
     Dosage: 100 ML, QD USED TO DILUTE 0.6 G CYCLOPHOSPHAMIDE
     Route: 041
     Dates: start: 20221118, end: 20221118
  3. METHOTREXATE [Suspect]
     Active Substance: METHOTREXATE
     Indication: Chemotherapy
     Dosage: 0.012 G QD
     Route: 037
     Dates: start: 20221121, end: 20221121
  4. CYTARABINE [Suspect]
     Active Substance: CYTARABINE
     Indication: Chemotherapy
     Dosage: 0.045 G QD
     Route: 037
     Dates: start: 20221119, end: 20221123
  5. DEXAMETHASONE SODIUM PHOSPHATE [Concomitant]
     Active Substance: DEXAMETHASONE SODIUM PHOSPHATE
     Indication: Antiallergic therapy
     Dosage: 2.5 MG QD
     Route: 037
     Dates: start: 20221121, end: 20221121
  6. SODIUM CHLORIDE [Concomitant]
     Active Substance: SODIUM CHLORIDE
     Indication: Vehicle solution use
     Dosage: 100 ML QD
     Route: 041
     Dates: start: 20221119, end: 20221123
  7. TROPISETRON HYDROCHLORIDE [Concomitant]
     Active Substance: TROPISETRON HYDROCHLORIDE
     Indication: Antiemetic supportive care
     Dosage: 1.4 MG QD
     Route: 041
     Dates: start: 20221119, end: 20221123
  8. ONDANSETRON HYDROCHLORIDE [Concomitant]
     Active Substance: ONDANSETRON HYDROCHLORIDE
     Indication: Antiemetic supportive care
     Dosage: 3 MG QD
     Route: 041
     Dates: start: 20221118, end: 20221118
  9. CIMETIDINE [Concomitant]
     Active Substance: CIMETIDINE
     Indication: Antiemetic supportive care
     Dosage: 1.5 ML QD
     Route: 041
     Dates: start: 20221118, end: 20221126
  10. CIMETIDINE [Concomitant]
     Active Substance: CIMETIDINE
     Indication: Prophylaxis

REACTIONS (1)
  - Agranulocytosis [Recovering/Resolving]

NARRATIVE: CASE EVENT DATE: 20221123
